FAERS Safety Report 8839768 (Version 5)
Quarter: 2013Q4

REPORT INFORMATION
  Report Type: Report from Study
  Country: JP (occurrence: JP)
  Receive Date: 20121015
  Receipt Date: 20131125
  Transmission Date: 20140711
  Serious: Yes (Hospitalization)
  Sender: FDA-Public Use
  Company Number: JP-SANOFI-AVENTIS-2012SA070897

PATIENT
  Age: 68 Year
  Sex: Male
  Weight: 60.3 kg

DRUGS (17)
  1. CABAZITAXEL [Suspect]
     Indication: PROSTATE CANCER
     Dosage: -HOUR INTRAVENOUS INFUSION
     Route: 041
     Dates: start: 20120725, end: 20120725
  2. CABAZITAXEL [Suspect]
     Indication: PROSTATE CANCER
     Route: 041
     Dates: start: 20120815, end: 20120815
  3. PREDNISOLONE [Suspect]
     Indication: PROSTATE CANCER
     Route: 048
     Dates: start: 20120725, end: 20120913
  4. PREDNISOLONE [Suspect]
     Indication: PROSTATE CANCER
     Route: 048
     Dates: start: 20120914, end: 20120914
  5. LASIX [Concomitant]
     Indication: OEDEMA PERIPHERAL
     Route: 048
     Dates: start: 20120702
  6. CHLORPHENIRAMINE MALEATE [Concomitant]
     Indication: PREMEDICATION
     Route: 041
     Dates: start: 20120725, end: 20120725
  7. CHLORPHENIRAMINE MALEATE [Concomitant]
     Indication: PREMEDICATION
     Route: 041
     Dates: start: 20120815, end: 20120815
  8. GASTER D [Concomitant]
     Indication: GASTRITIS
     Route: 041
     Dates: start: 20120725, end: 20120725
  9. GASTER D [Concomitant]
     Indication: GASTRITIS
     Route: 048
     Dates: start: 20120815, end: 20120815
  10. GASTER D [Concomitant]
     Indication: GASTRITIS
     Route: 048
     Dates: start: 20120801, end: 20121004
  11. DEXAMETHASONE SODIUM PHOSPHATE [Concomitant]
     Indication: PREMEDICATION
     Route: 041
     Dates: start: 20120725, end: 20120725
  12. DEXAMETHASONE SODIUM PHOSPHATE [Concomitant]
     Indication: PREMEDICATION
     Route: 041
     Dates: start: 20120815, end: 20120815
  13. HARNAL [Concomitant]
     Indication: POLLAKIURIA
     Route: 048
     Dates: start: 20120731
  14. ENTERONON R [Concomitant]
     Indication: FUNCTIONAL GASTROINTESTINAL DISORDER
     Route: 048
  15. METHYCOBAL [Concomitant]
     Indication: NEUROPATHY PERIPHERAL
     Route: 048
     Dates: start: 20111102, end: 20120924
  16. ANTIBIOTICS-RESISTANT LACTIC ACID BACTERIAE [Concomitant]
     Route: 048
     Dates: start: 20110502, end: 20120924
  17. FILGRASTIM [Concomitant]
     Route: 058
     Dates: start: 20120827, end: 20120829

REACTIONS (1)
  - Interstitial lung disease [Recovered/Resolved]
